FAERS Safety Report 8152811-7 (Version None)
Quarter: 2012Q1

REPORT INFORMATION
  Report Type: 
  Country: None (occurrence: None)
  Receive Date: 20120216
  Receipt Date: 20120216
  Transmission Date: 20120608
  Serious: Yes (Death)
  Sender: FDA-Public Use
  Company Number: None

PATIENT
  Age: 81 Year
  Sex: Male

DRUGS (10)
  1. IPRATROPIUM BROMIDE AND ALBUTEROL SULFATE [Concomitant]
  2. DOCUSATE [Concomitant]
  3. ASPIRIN [Concomitant]
  4. APAP TAB [Concomitant]
  5. FUROSEMIDE [Concomitant]
  6. FLUTICASONE PROPIONATE/SALMETEROL [Concomitant]
  7. ALLOPURINOL [Concomitant]
  8. OMEPRAZOLE [Concomitant]
  9. REVLIMID [Suspect]
     Indication: MULTIPLE MYELOMA
     Dosage: REVLIMID 15 MG X21D/28D ORALLY
     Route: 048
     Dates: start: 20110601, end: 20110901
  10. REVLIMID [Suspect]
     Indication: MULTIPLE MYELOMA
     Dosage: REVLIMID 15 MG X21D/28D ORALLY
     Route: 048
     Dates: start: 20100801, end: 20110201

REACTIONS (4)
  - SEPSIS [None]
  - GASTROENTERITIS [None]
  - MULTIPLE SCLEROSIS [None]
  - DISEASE PROGRESSION [None]
